FAERS Safety Report 15232029 (Version 2)
Quarter: 2018Q3

REPORT INFORMATION
  Report Type: Spontaneous
  Country: JP (occurrence: JP)
  Receive Date: 20180802
  Receipt Date: 20180830
  Transmission Date: 20181010
  Serious: Yes (Hospitalization)
  Sender: FDA-Public Use
  Company Number: JP-EISAI MEDICAL RESEARCH-EC-2018-040648

PATIENT
  Sex: Male
  Weight: 64 kg

DRUGS (3)
  1. AZILVA [Concomitant]
     Active Substance: AZILSARTAN KAMEDOXOMIL
     Indication: HYPERTENSION
     Dosage: UNKNOWN
  2. LENVIMA [Suspect]
     Active Substance: LENVATINIB
     Route: 048
     Dates: start: 2018
  3. LENVIMA [Suspect]
     Active Substance: LENVATINIB
     Indication: HEPATOCELLULAR CARCINOMA
     Route: 048
     Dates: start: 20180524, end: 2018

REACTIONS (10)
  - Diarrhoea [Unknown]
  - Dysphonia [Recovering/Resolving]
  - Gingival bleeding [Recovering/Resolving]
  - Palmar-plantar erythrodysaesthesia syndrome [Recovering/Resolving]
  - Hepatic function abnormal [Unknown]
  - Glossitis [Recovering/Resolving]
  - Erythema [Recovering/Resolving]
  - Blood pressure increased [Recovering/Resolving]
  - Gingivitis [Recovering/Resolving]
  - Decreased appetite [Unknown]

NARRATIVE: CASE EVENT DATE: 20180526
